FAERS Safety Report 8558847 (Version 5)
Quarter: 2019Q2

REPORT INFORMATION
  Report Type: Spontaneous
  Country: US (occurrence: US)
  Receive Date: 20120511
  Receipt Date: 20190605
  Transmission Date: 20190711
  Serious: Yes (Death, Hospitalization, Other)
  Sender: FDA-Public Use
  Company Number: US-009507513-1205USA01766

PATIENT
  Sex: Female
  Weight: 54.88 kg

DRUGS (9)
  1. CALCIUM (UNSPECIFIED) [Concomitant]
     Active Substance: CALCIUM
  2. FOSAMAX [Suspect]
     Active Substance: ALENDRONATE SODIUM
     Indication: OSTEOPENIA
  3. FOSAMAX [Suspect]
     Active Substance: ALENDRONATE SODIUM
     Indication: OSTEOPOROSIS PROPHYLAXIS
     Dosage: 70 MG, QW
     Route: 048
     Dates: start: 20080303
  4. FOSAMAX [Suspect]
     Active Substance: ALENDRONATE SODIUM
     Dosage: 10 MG, UNK
     Route: 048
  5. LANOXIN [Concomitant]
     Active Substance: DIGOXIN
     Dosage: .25 UNK, QD
     Route: 048
  6. VITAMIN D (UNSPECIFIED) [Concomitant]
     Active Substance: VITAMIN D NOS
  7. FOSAMAX [Suspect]
     Active Substance: ALENDRONATE SODIUM
     Indication: OSTEOPOROSIS PROPHYLAXIS
     Dosage: 70 MG, QW
     Route: 048
     Dates: start: 2004, end: 20110109
  8. ALENDRONATE SODIUM. [Suspect]
     Active Substance: ALENDRONATE SODIUM
     Indication: OSTEOPOROSIS PROPHYLAXIS
     Dosage: 70 MG, QW
     Route: 048
     Dates: start: 20020417
  9. FOSAMAX [Suspect]
     Active Substance: ALENDRONATE SODIUM
     Indication: OSTEOPENIA

REACTIONS (38)
  - Heat stroke [Unknown]
  - Low turnover osteopathy [Unknown]
  - Upper-airway cough syndrome [Unknown]
  - Low turnover osteopathy [Unknown]
  - Anxiety [Unknown]
  - Supraventricular tachycardia [Unknown]
  - Dry mouth [Unknown]
  - Rhinorrhoea [Unknown]
  - Transfusion [Unknown]
  - Memory impairment [Unknown]
  - Femur fracture [Unknown]
  - Patella fracture [Unknown]
  - Mitral valve prolapse [Unknown]
  - Animal scratch [Unknown]
  - Dysgeusia [Unknown]
  - Metastatic neoplasm [Fatal]
  - Depression [Unknown]
  - Extrasystoles [Unknown]
  - Femur fracture [Unknown]
  - Intramedullary rod insertion [Unknown]
  - Mammogram abnormal [Unknown]
  - Skin abrasion [Unknown]
  - Goitre [Unknown]
  - Blood triglycerides increased [Unknown]
  - Medical device discomfort [Unknown]
  - Intramedullary rod insertion [Unknown]
  - Anaemia postoperative [Unknown]
  - Dementia Alzheimer^s type [Unknown]
  - Osteoporosis [Unknown]
  - Osteopenia [Unknown]
  - Intestinal polyp [Unknown]
  - Impaired healing [Unknown]
  - Hyposmia [Unknown]
  - Cellulitis [Unknown]
  - Insomnia [Unknown]
  - Fall [Unknown]
  - Blister [Unknown]
  - Arthralgia [Unknown]

NARRATIVE: CASE EVENT DATE: 2001
